FAERS Safety Report 7304894-1 (Version None)
Quarter: 2011Q1

REPORT INFORMATION
  Report Type: 
  Country: None (occurrence: None)
  Receive Date: 20110222
  Receipt Date: 20110210
  Transmission Date: 20110831
  Serious: Yes (Hospitalization)
  Sender: FDA-Public Use
  Company Number: CA-ELI_LILLY_AND_COMPANY-CA201006005538

PATIENT
  Age: 77 Year
  Sex: Female

DRUGS (19)
  1. FORTEO [Suspect]
     Indication: OSTEOPOROSIS
     Dosage: 20 UG, DAILY (1/D)
     Route: 058
     Dates: start: 20100606
  2. NORVASC [Concomitant]
     Dosage: UNK, UNKNOWN
     Route: 065
  3. EVISTA [Concomitant]
     Dosage: UNK, UNKNOWN
     Route: 065
  4. CALCIUM [Concomitant]
     Dosage: 1250 MG, DAILY (1/D)
     Route: 065
  5. PREDNISONE [Concomitant]
     Dosage: 18 MG, UNKNOWN
     Route: 065
     Dates: start: 20080101
  6. OXYCODONE HCL AND ACETAMINOPHEN [Concomitant]
     Dosage: UNK, UNKNOWN
     Route: 065
  7. MICARDIS [Concomitant]
     Dosage: UNK, UNKNOWN
     Route: 065
  8. DEXTROL [Concomitant]
     Dosage: UNK, UNKNOWN
     Route: 065
  9. OXYCONTIN [Concomitant]
     Dosage: UNK, UNKNOWN
     Route: 065
  10. IMOVANE [Concomitant]
     Dosage: UNK, UNKNOWN
     Route: 065
  11. PRILOSEC [Concomitant]
     Dosage: UNK, UNKNOWN
     Route: 065
  12. LEVOTHYROXINE [Concomitant]
     Dosage: UNK, UNKNOWN
     Route: 065
  13. COENZYME Q10 [Concomitant]
     Dosage: UNK, UNKNOWN
     Route: 065
  14. POTASSIUM [Concomitant]
     Dosage: UNK, UNKNOWN
     Route: 065
  15. VITAMIN B-12 [Concomitant]
  16. CLONAZEPAM [Concomitant]
     Dosage: UNK, UNKNOWN
     Route: 065
  17. FUROSEMIDE [Concomitant]
     Dosage: UNK, UNKNOWN
     Route: 065
  18. METFORMIN [Concomitant]
     Dosage: UNK, UNKNOWN
     Route: 065
  19. VIT D [Concomitant]
     Dosage: 2000 IU, DAILY (1/D)
     Route: 065

REACTIONS (6)
  - ABDOMINAL PAIN UPPER [None]
  - FRACTURED SACRUM [None]
  - INSOMNIA [None]
  - NAUSEA [None]
  - DYSPEPSIA [None]
  - HEADACHE [None]
